FAERS Safety Report 14163431 (Version 2)
Quarter: 2018Q1

REPORT INFORMATION
  Report Type: Report from Study
  Country: None (occurrence: US)
  Receive Date: 20171107
  Receipt Date: 20180223
  Transmission Date: 20180508
  Serious: Yes (Death, Other)
  Sender: FDA-Public Use
  Company Number: US-ABBVIE-17K-163-2152679-00

PATIENT
  Sex: Male
  Weight: 83.99 kg

DRUGS (7)
  1. ISONIAZID. [Concomitant]
     Active Substance: ISONIAZID
     Indication: ANTIBIOTIC PROPHYLAXIS
  2. HUMIRA [Suspect]
     Active Substance: ADALIMUMAB
     Indication: COLITIS ULCERATIVE
     Route: 058
     Dates: start: 20170829
  3. LIALDA [Concomitant]
     Active Substance: MESALAMINE
     Indication: BLOOD IRON DECREASED
     Dosage: IRON INFUSIONS DUE TO STEROIDS
  4. LIALDA [Concomitant]
     Active Substance: MESALAMINE
     Indication: COLITIS ULCERATIVE
  5. PREDNISONE. [Concomitant]
     Active Substance: PREDNISONE
     Indication: COLITIS ULCERATIVE
     Dosage: WEANING OFF 100MG TO 60MG ORAL
  6. AZATHIOPRINE. [Concomitant]
     Active Substance: AZATHIOPRINE
     Indication: COLITIS ULCERATIVE
  7. ISONIAZID. [Concomitant]
     Active Substance: ISONIAZID
     Indication: TUBERCULOSIS

REACTIONS (17)
  - Diarrhoea [Fatal]
  - Immunosuppression [Fatal]
  - Fluid retention [Unknown]
  - Confusional state [Fatal]
  - Post procedural complication [Unknown]
  - Peripheral swelling [Unknown]
  - Peripheral swelling [Fatal]
  - Chromaturia [Fatal]
  - Large intestine perforation [Fatal]
  - Condition aggravated [Unknown]
  - Clostridial sepsis [Fatal]
  - Heart rate irregular [Unknown]
  - Embolic stroke [Fatal]
  - Renal failure [Unknown]
  - Myocardial infarction [Unknown]
  - Respiratory failure [Fatal]
  - Pharyngeal oedema [Fatal]
